FAERS Safety Report 7238294-X (Version None)
Quarter: 2011Q1

REPORT INFORMATION
  Report Type: 
  Country: None (occurrence: None)
  Receive Date: 20110121
  Receipt Date: 20110112
  Transmission Date: 20110831
  Serious: Yes (Life-Threatening, Hospitalization, Other)
  Sender: FDA-Public Use
  Company Number: US-JNJFOC-20101205255

PATIENT
  Sex: Female

DRUGS (10)
  1. REMICADE [Suspect]
     Route: 042
  2. REMICADE [Suspect]
     Route: 042
  3. REMICADE [Suspect]
     Route: 042
  4. REMICADE [Suspect]
     Route: 042
  5. REMICADE [Suspect]
     Indication: PSORIASIS
     Route: 042
  6. REMICADE [Suspect]
     Route: 042
  7. REMICADE [Suspect]
     Route: 042
  8. STELARA [Suspect]
     Indication: PSORIASIS
     Route: 058
  9. STELARA [Suspect]
     Route: 058
  10. REMICADE [Suspect]
     Route: 042

REACTIONS (7)
  - PNEUMONIA STREPTOCOCCAL [None]
  - AMNESIA [None]
  - SEPSIS [None]
  - DEAFNESS [None]
  - COMA [None]
  - PSORIASIS [None]
  - MENINGITIS PNEUMOCOCCAL [None]
